FAERS Safety Report 9376150 (Version 1)
Quarter: 2013Q2

REPORT INFORMATION
  Report Type: Spontaneous
  Country: US (occurrence: None)
  Receive Date: 20130628
  Receipt Date: 20130628
  Transmission Date: 20140414
  Serious: Yes (Other)
  Sender: FDA-Public Use
  Company Number: None

PATIENT
  Age: 56 Year
  Sex: Female
  Weight: 86.18 kg

DRUGS (7)
  1. NUVIGIL [Suspect]
     Indication: SOMNOLENCE
     Dosage: 150MG?1 PILL PER DAY?EARLY A.M.?BY MOUTH
     Route: 048
     Dates: start: 20111001, end: 20130602
  2. NUVIGIL [Suspect]
     Indication: SLEEP APNOEA SYNDROME
     Dosage: 150MG?1 PILL PER DAY?EARLY A.M.?BY MOUTH
     Route: 048
     Dates: start: 20111001, end: 20130602
  3. METHADONE [Concomitant]
  4. TOPROL [Concomitant]
  5. LISINOPRIL [Concomitant]
  6. PROZAC 20MG [Concomitant]
  7. MULTI VITAMIN [Concomitant]

REACTIONS (5)
  - Panic attack [None]
  - Anxiety [None]
  - Stress [None]
  - Impaired work ability [None]
  - Mental disorder [None]
